FAERS Safety Report 10248857 (Version 1)
Quarter: 2014Q2

REPORT INFORMATION
  Report Type: Report from Study
  Country: US (occurrence: US)
  Receive Date: 20140620
  Receipt Date: 20140620
  Transmission Date: 20141212
  Serious: Yes (Other)
  Sender: FDA-Public Use
  Company Number: US-JNJFOC-20140610456

PATIENT
  Age: 58 Year
  Sex: Male
  Weight: 108.41 kg

DRUGS (6)
  1. REMICADE [Suspect]
     Indication: PSORIATIC ARTHROPATHY
     Route: 042
     Dates: start: 2014
  2. METHOTREXATE [Suspect]
     Indication: PSORIATIC ARTHROPATHY
     Route: 048
     Dates: start: 2006
  3. POTASSIUM CHLORIDE [Concomitant]
     Indication: BLOOD POTASSIUM DECREASED
     Route: 048
     Dates: start: 201401
  4. CHLORTALIDONE [Concomitant]
     Indication: BLOOD PRESSURE
     Route: 048
     Dates: start: 201312
  5. PEPCID [Concomitant]
     Indication: GASTROOESOPHAGEAL REFLUX DISEASE
     Route: 048
     Dates: start: 201401
  6. FOLIC ACID [Concomitant]
     Indication: CARDIAC DISORDER
     Dosage: 800 ^MCR^
     Route: 048
     Dates: start: 2006

REACTIONS (3)
  - Hepatic steatosis [Unknown]
  - Gallbladder disorder [Recovered/Resolved]
  - Hepatic function abnormal [Unknown]
